FAERS Safety Report 7222976-X (Version None)
Quarter: 2011Q1

REPORT INFORMATION
  Report Type: 
  Country: None (occurrence: None)
  Receive Date: 20110112
  Receipt Date: 20110103
  Transmission Date: 20110831
  Serious: Yes (Hospitalization)
  Sender: FDA-Public Use
  Company Number: FR-ASTRAZENECA-2011SE00452

PATIENT
  Age: 20719 Day
  Sex: Male

DRUGS (5)
  1. NEXIUM [Suspect]
     Route: 048
     Dates: start: 20100201, end: 20100330
  2. TRIFLUCAN [Suspect]
     Route: 048
     Dates: start: 20100309, end: 20100330
  3. ZELITREX [Concomitant]
     Route: 048
     Dates: start: 20100309
  4. ORACILLIN [Suspect]
     Route: 048
     Dates: start: 20090901, end: 20100330
  5. AUGMENTIN '125' [Suspect]
     Route: 048
     Dates: start: 20100309, end: 20100330

REACTIONS (3)
  - FEBRILE BONE MARROW APLASIA [None]
  - SKIN TEST NEGATIVE [None]
  - STEVENS-JOHNSON SYNDROME [None]
